FAERS Safety Report 14202548 (Version 2)
Quarter: 2018Q3

REPORT INFORMATION
  Report Type: Spontaneous
  Country: US (occurrence: US)
  Receive Date: 20171117
  Receipt Date: 20180717
  Transmission Date: 20181010
  Serious: No
  Sender: FDA-Public Use
  Company Number: US-BAUSCH-BL-2017-022751

PATIENT
  Sex: Female
  Weight: 81.27 kg

DRUGS (1)
  1. XIFAXAN [Suspect]
     Active Substance: RIFAXIMIN
     Indication: HEPATITIS C
     Route: 048

REACTIONS (4)
  - Confusional state [Unknown]
  - Off label use [Unknown]
  - Therapeutic response unexpected [Unknown]
  - Drug ineffective for unapproved indication [Unknown]
